FAERS Safety Report 5027187-4 (Version None)
Quarter: 2006Q2

REPORT INFORMATION
  Report Type: 
  Country: None (occurrence: None)
  Receive Date: 20060501
  Receipt Date: 20060119
  Transmission Date: 20061013
  Serious: No
  Sender: FDA-Public Use
  Company Number: 2006PV007320

PATIENT
  Age: 68 Year
  Sex: Male
  Weight: 120.2032 kg

DRUGS (5)
  1. SYMLIN [Suspect]
     Indication: DIABETES MELLITUS INSULIN-DEPENDENT
     Dosage: 60 MC; TID; SC, 60 MG; TID; SC
     Route: 058
     Dates: start: 20060107, end: 20060116
  2. SYMLIN [Suspect]
     Indication: DIABETES MELLITUS INSULIN-DEPENDENT
     Dosage: 60 MC; TID; SC, 60 MG; TID; SC
     Route: 058
     Dates: start: 20060119
  3. LANTUS [Concomitant]
  4. GLUCOPHAGE [Concomitant]
  5. NOVOLOG [Concomitant]

REACTIONS (3)
  - BLOOD GLUCOSE INCREASED [None]
  - DYSPEPSIA [None]
  - NAUSEA [None]
